FAERS Safety Report 20958578 (Version 2)
Quarter: 2022Q4

REPORT INFORMATION
  Report Type: Report from Study
  Country: ES (occurrence: ES)
  Receive Date: 20220614
  Receipt Date: 20221109
  Transmission Date: 20230113
  Serious: Yes (Other)
  Sender: FDA-Public Use
  Company Number: ES-SHIRE-ES201946005

PATIENT
  Age: 7 Year
  Sex: Male

DRUGS (15)
  1. TEDUGLUTIDE [Suspect]
     Active Substance: TEDUGLUTIDE
     Indication: Short-bowel syndrome
     Dosage: 1.2 MILLIGRAM, QD
     Route: 042
     Dates: start: 20190827, end: 20191211
  2. TEDUGLUTIDE [Suspect]
     Active Substance: TEDUGLUTIDE
     Indication: Short-bowel syndrome
     Dosage: 1.2 MILLIGRAM, QD
     Route: 042
     Dates: start: 20190827, end: 20191211
  3. TEDUGLUTIDE [Suspect]
     Active Substance: TEDUGLUTIDE
     Indication: Short-bowel syndrome
     Dosage: 1.2 MILLIGRAM, QD
     Route: 042
     Dates: start: 20190827, end: 20191211
  4. TEDUGLUTIDE [Suspect]
     Active Substance: TEDUGLUTIDE
     Indication: Short-bowel syndrome
     Dosage: 1.2 MILLIGRAM, QD
     Route: 042
     Dates: start: 20190827, end: 20191211
  5. FERROUS SULFATE [Concomitant]
     Active Substance: FERROUS SULFATE
     Indication: Anaemia
     Dosage: 45 MILLIGRAM, BID
     Route: 048
     Dates: start: 20170612, end: 20170612
  6. METRONIDAZOLE [Concomitant]
     Active Substance: METRONIDAZOLE
     Indication: Aerophagia
     Dosage: UNK
     Route: 048
     Dates: start: 202108, end: 202109
  7. METRONIDAZOLE [Concomitant]
     Active Substance: METRONIDAZOLE
     Indication: Overgrowth bacterial
     Dosage: 75 MILLIGRAM
     Route: 048
     Dates: start: 20170612, end: 20171108
  8. FERRIC CARBOXYMALTOSE [Concomitant]
     Active Substance: FERRIC CARBOXYMALTOSE
     Indication: Iron deficiency anaemia
     Dosage: 500 MILLIGRAM, SINGLE
     Route: 042
     Dates: start: 20200626, end: 20200626
  9. FERRIC CARBOXYMALTOSE [Concomitant]
     Active Substance: FERRIC CARBOXYMALTOSE
     Dosage: 500 MILLIGRAM, SINGLE
     Route: 042
     Dates: start: 20200130, end: 20200130
  10. NITROUS OXIDE [Concomitant]
     Active Substance: NITROUS OXIDE
     Indication: Sedative therapy
     Dosage: UNK, SINGLE
     Route: 055
     Dates: start: 20200110, end: 20200110
  11. NITROUS OXIDE [Concomitant]
     Active Substance: NITROUS OXIDE
     Dosage: UNK, SINGLE
     Route: 055
     Dates: start: 20200111, end: 20200111
  12. NITROUS OXIDE [Concomitant]
     Active Substance: NITROUS OXIDE
     Dosage: UNK, SINGLE
     Route: 055
     Dates: start: 20200112, end: 20200112
  13. NITROUS OXIDE [Concomitant]
     Active Substance: NITROUS OXIDE
     Dosage: UNK, SINGLE
     Route: 055
     Dates: start: 20200411, end: 20200411
  14. NITROUS OXIDE [Concomitant]
     Active Substance: NITROUS OXIDE
     Dosage: UNK, SINGLE
     Route: 055
     Dates: start: 20201112, end: 20201112
  15. NITROUS OXIDE [Concomitant]
     Active Substance: NITROUS OXIDE
     Dosage: UNK, SINGLE
     Route: 055
     Dates: start: 20201113, end: 20201113

REACTIONS (1)
  - Intestinal pseudo-obstruction [Recovered/Resolved]

NARRATIVE: CASE EVENT DATE: 20190831
